FAERS Safety Report 9291395 (Version 1)
Quarter: 2013Q2

REPORT INFORMATION
  Report Type: Report from Study
  Country: AU (occurrence: AU)
  Receive Date: 20130515
  Receipt Date: 20130515
  Transmission Date: 20140414
  Serious: Yes (Other)
  Sender: FDA-Public Use
  Company Number: PHHY2012AU045992

PATIENT
  Sex: Female

DRUGS (1)
  1. EXJADE [Suspect]
     Indication: MYELOFIBROSIS
     Dosage: 500 MG
     Route: 048
     Dates: start: 20120423

REACTIONS (4)
  - Bone marrow disorder [Unknown]
  - Splenomegaly [Unknown]
  - Rash [Recovering/Resolving]
  - Fatigue [Unknown]
